FAERS Safety Report 23500073 (Version 1)
Quarter: 2024Q1

REPORT INFORMATION
  Report Type: Report from Study
  Country: DE (occurrence: DE)
  Receive Date: 20240208
  Receipt Date: 20240208
  Transmission Date: 20240410
  Serious: Yes (Death)
  Sender: FDA-Public Use
  Company Number: DE-ROCHE-2076083

PATIENT
  Age: 75 Year
  Sex: Female

DRUGS (5)
  1. ETANERCEPT [Suspect]
     Active Substance: ETANERCEPT
     Indication: Rheumatoid arthritis
     Dosage: 500 MG, START DATE -MAR-2023
     Route: 065
  2. ENBREL [Suspect]
     Active Substance: ETANERCEPT
     Indication: Rheumatoid arthritis
     Dosage: 500.000MG
     Route: 065
     Dates: start: 201707, end: 201905
  3. ENBREL [Suspect]
     Active Substance: ETANERCEPT
     Dosage: 500.000MG
     Route: 065
     Dates: start: 201709, end: 202003
  4. TOCILIZUMAB [Suspect]
     Active Substance: TOCILIZUMAB
     Indication: Rheumatoid arthritis
     Dosage: 162 MG
     Route: 058
     Dates: start: 201609, end: 201707
  5. TOCILIZUMAB [Suspect]
     Active Substance: TOCILIZUMAB
     Indication: Rheumatoid arthritis
     Dosage: 162.000MG
     Route: 058
     Dates: start: 201609, end: 201707

REACTIONS (3)
  - COVID-19 [Fatal]
  - Rash [Unknown]
  - Intercostal neuralgia [Unknown]

NARRATIVE: CASE EVENT DATE: 20161115
